FAERS Safety Report 17715328 (Version 1)
Quarter: 2020Q2

REPORT INFORMATION
  Report Type: Spontaneous
  Country: CN (occurrence: CN)
  Receive Date: 20200427
  Receipt Date: 20200427
  Transmission Date: 20200714
  Serious: Yes (Other)
  Sender: FDA-Public Use
  Company Number: CN-BAYER-2020-070777

PATIENT
  Age: 82 Year
  Sex: Female
  Weight: 60 kg

DRUGS (3)
  1. HAI KUN SHEN XI (FUCOIDAN) [Suspect]
     Active Substance: DIETARY SUPPLEMENT\HERBALS
     Indication: CHRONIC KIDNEY DISEASE
     Dosage: 0.44 G, TID
     Route: 048
     Dates: start: 20200412, end: 20200419
  2. FELODIPINE. [Suspect]
     Active Substance: FELODIPINE
     Indication: HYPERTENSION
     Dosage: 5 MG, QD
     Route: 048
     Dates: start: 20200412, end: 20200419
  3. GLUCOBAY [Suspect]
     Active Substance: ACARBOSE
     Indication: HYPERGLYCAEMIA
     Dosage: 0.1 G, TID
     Route: 048
     Dates: start: 20200412, end: 20200419

REACTIONS (5)
  - Electrocardiogram ST-T change [Recovering/Resolving]
  - Atrial fibrillation [Recovering/Resolving]
  - Blood pressure increased [Recovering/Resolving]
  - Electrocardiogram low voltage [None]
  - Extrasystoles [None]

NARRATIVE: CASE EVENT DATE: 20200414
